FAERS Safety Report 18850701 (Version 2)
Quarter: 2021Q1

REPORT INFORMATION
  Report Type: Spontaneous
  Country: CA (occurrence: CA)
  Receive Date: 20210205
  Receipt Date: 20210215
  Transmission Date: 20210420
  Serious: Yes (Hospitalization, Other)
  Sender: FDA-Public Use
  Company Number: CA-GILEAD-2021-0515415

PATIENT
  Age: 40 Year
  Sex: Male
  Weight: 110 kg

DRUGS (6)
  1. CEPHALEXIN [CEFALEXIN] [Concomitant]
     Active Substance: CEPHALEXIN
     Indication: CELLULITIS
     Dosage: 500 MG
     Dates: start: 20210105, end: 20210115
  2. AMOXICILLIN. [Concomitant]
     Active Substance: AMOXICILLIN
     Indication: CELLULITIS
     Dosage: 125 MG
     Route: 048
     Dates: start: 20201209, end: 20201216
  3. GABAPENTIN. [Concomitant]
     Active Substance: GABAPENTIN
     Indication: PAIN
     Dosage: 300 MG
     Route: 048
     Dates: start: 20200407
  4. CEFTRIAXONE. [Concomitant]
     Active Substance: CEFTRIAXONE
     Indication: CELLULITIS
     Dosage: 10 MG
     Route: 042
     Dates: start: 20201130, end: 20201207
  5. EPCLUSA [Suspect]
     Active Substance: SOFOSBUVIR\VELPATASVIR
     Indication: HEPATITIS C
     Dosage: UNK
     Route: 048
     Dates: start: 20201223
  6. NALTREXONE [Concomitant]
     Active Substance: NALTREXONE
     Indication: ALCOHOL WITHDRAWAL SYNDROME
     Dosage: 30 MG
     Route: 048
     Dates: start: 20200526

REACTIONS (3)
  - Seizure [Unknown]
  - Alcohol withdrawal syndrome [Unknown]
  - Cellulitis [Unknown]

NARRATIVE: CASE EVENT DATE: 20210125
